FAERS Safety Report 9992930 (Version 1)
Quarter: 2014Q1

REPORT INFORMATION
  Report Type: Report from Study
  Country: US (occurrence: US)
  Receive Date: 20140310
  Receipt Date: 20140310
  Transmission Date: 20141002
  Serious: No
  Sender: FDA-Public Use
  Company Number: US-ABBVIE-13P-163-1138602-00

PATIENT
  Age: 31 Year
  Sex: Female

DRUGS (2)
  1. LUPRON DEPOT [Suspect]
     Indication: ENDOMETRIOSIS
     Dates: start: 20130709
  2. PREMPRO [Concomitant]
     Indication: PRODUCT USED FOR UNKNOWN INDICATION
     Dosage: 0.625MG-2.5 MG 1 TABLET ONCE/DAY

REACTIONS (3)
  - Abdominal discomfort [Unknown]
  - Headache [Unknown]
  - Pelvic pain [Not Recovered/Not Resolved]
